FAERS Safety Report 17170869 (Version 1)
Quarter: 2019Q4

REPORT INFORMATION
  Report Type: Spontaneous
  Country: GR (occurrence: GR)
  Receive Date: 20191218
  Receipt Date: 20191218
  Transmission Date: 20200122
  Serious: Yes (Life-Threatening, Hospitalization)
  Sender: FDA-Public Use
  Company Number: GR-ASTRAZENECA-2019SF80850

PATIENT
  Age: 35 Year
  Sex: Male

DRUGS (3)
  1. SEROTIAPIN [Suspect]
     Active Substance: QUETIAPINE FUMARATE
     Route: 048
     Dates: start: 20191207
  2. AMISULPRID [Interacting]
     Active Substance: AMISULPRIDE
     Route: 048
     Dates: start: 20191207
  3. TAVOR [Concomitant]

REACTIONS (1)
  - Toxicity to various agents [Recovered/Resolved]

NARRATIVE: CASE EVENT DATE: 20191207
